FAERS Safety Report 6167262-4 (Version None)
Quarter: 2009Q2

REPORT INFORMATION
  Report Type: 
  Country: None (occurrence: None)
  Receive Date: 20090424
  Receipt Date: 20090417
  Transmission Date: 20091009
  Serious: Yes (Hospitalization, Other)
  Sender: FDA-Public Use
  Company Number: US-ELI_LILLY_AND_COMPANY-US200904004206

PATIENT
  Sex: Male
  Weight: 115.65 kg

DRUGS (13)
  1. BYETTA [Suspect]
     Indication: TYPE 2 DIABETES MELLITUS
     Dosage: 5 UG, 2/D
     Route: 058
     Dates: start: 20050101, end: 20060101
  2. BYETTA [Suspect]
     Dosage: 10 UG, DAILY (1/D)
     Route: 058
     Dates: start: 20060101
  3. ACARBOSE [Concomitant]
     Indication: TYPE 2 DIABETES MELLITUS
     Dosage: 50 UG, 3/D
  4. GLIPIZIDE [Concomitant]
     Indication: TYPE 2 DIABETES MELLITUS
     Dosage: 10 MG, 3/D
  5. LANTUS [Concomitant]
     Indication: TYPE 2 DIABETES MELLITUS
     Dosage: 12 U, EACH EVENING
  6. LISINOPRIL [Concomitant]
     Dosage: 40 MG, DAILY (1/D)
  7. TERAZOSIN HCL [Concomitant]
     Dosage: 5 MG, UNK
  8. CARVEDILOL [Concomitant]
     Dosage: 6.25 MG, 2/D
  9. FUROSEMIDE [Concomitant]
     Indication: RENAL DISORDER
     Dosage: 120 MG, UNK
  10. SIMVASTATIN [Concomitant]
     Indication: BLOOD CHOLESTEROL
     Dosage: 20 MG, DAILY (1/D)
  11. LIPITOR [Concomitant]
     Indication: BLOOD CHOLESTEROL
  12. SOTALOL HYDROCHLORIDE [Concomitant]
     Dosage: 80 MG, 2/D
  13. ASPIRIN [Concomitant]
     Dosage: 81 MG, UNK

REACTIONS (17)
  - BACK PAIN [None]
  - BLADDER CANCER [None]
  - BLOOD GLUCOSE DECREASED [None]
  - BLOOD GLUCOSE INCREASED [None]
  - DECREASED APPETITE [None]
  - DIZZINESS [None]
  - GLYCOSYLATED HAEMOGLOBIN INCREASED [None]
  - HIP ARTHROPLASTY [None]
  - HYPERHIDROSIS [None]
  - JOINT INJURY [None]
  - OEDEMA PERIPHERAL [None]
  - PAIN IN EXTREMITY [None]
  - SKELETAL INJURY [None]
  - SKIN LACERATION [None]
  - TENDON INJURY [None]
  - VASCULAR GRAFT [None]
  - WOUND INFECTION STAPHYLOCOCCAL [None]
